FAERS Safety Report 21726822 (Version 1)
Quarter: 2022Q4

REPORT INFORMATION
  Report Type: Spontaneous
  Country: US (occurrence: US)
  Receive Date: 20221214
  Receipt Date: 20221214
  Transmission Date: 20230113
  Serious: Yes (Hospitalization, Other)
  Sender: FDA-Public Use
  Company Number: US-SPECGX-T202202398

PATIENT
  Sex: Female

DRUGS (6)
  1. ACETAMINOPHEN\HYDROCODONE [Suspect]
     Active Substance: ACETAMINOPHEN\HYDROCODONE
     Indication: Pain in extremity
     Dosage: UNK, EVERY 6 HOURS
     Route: 065
  2. ACETAMINOPHEN\HYDROCODONE [Suspect]
     Active Substance: ACETAMINOPHEN\HYDROCODONE
     Dosage: UNK, EVERY 6 HOURS
     Route: 065
     Dates: start: 202212
  3. REMODULIN [Suspect]
     Active Substance: TREPROSTINIL
     Indication: Pulmonary arterial hypertension
     Dosage: UNK
     Route: 048
     Dates: start: 2019
  4. REMODULIN [Suspect]
     Active Substance: TREPROSTINIL
     Indication: Pulmonary arterial hypertension
     Dosage: 37 MILLILITER, EVERY HOUR (0.236 ?G/KG)
     Route: 041
     Dates: start: 202103
  5. ESTROGENS [Concomitant]
     Active Substance: ESTROGENS
     Indication: Product used for unknown indication
     Dosage: UNK
     Route: 065
  6. HYDROXYCHLOROQUINE [Concomitant]
     Active Substance: HYDROXYCHLOROQUINE
     Indication: Product used for unknown indication
     Dosage: UNK
     Route: 065

REACTIONS (18)
  - Pneumonia [Unknown]
  - Sepsis [Unknown]
  - Dyspnoea [Unknown]
  - Drug dependence [Unknown]
  - Pain in extremity [Unknown]
  - Neuralgia [Unknown]
  - Visual impairment [Unknown]
  - Peripheral swelling [Unknown]
  - Sensitivity to weather change [Unknown]
  - Therapy partial responder [Unknown]
  - Headache [Unknown]
  - Hypotension [Unknown]
  - Diarrhoea [Unknown]
  - Withdrawal syndrome [Unknown]
  - Medical device pain [Unknown]
  - Device use error [Unknown]
  - Product use issue [Unknown]
  - Device infusion issue [Unknown]

NARRATIVE: CASE EVENT DATE: 20190101
